FAERS Safety Report 8245958-8 (Version None)
Quarter: 2012Q1

REPORT INFORMATION
  Report Type: 
  Country: None (occurrence: None)
  Receive Date: 20120330
  Receipt Date: 20120327
  Transmission Date: 20120608
  Serious: No
  Sender: FDA-Public Use
  Company Number: US-PFIZER INC-2012078895

PATIENT
  Sex: Female
  Weight: 56 kg

DRUGS (2)
  1. ESTRING [Suspect]
     Indication: MENOPAUSE
     Dosage: UNK
     Route: 067
     Dates: start: 20120301, end: 20120301
  2. PROGESTERONE [Concomitant]
     Indication: MENOPAUSE
     Dosage: UNK

REACTIONS (2)
  - VULVOVAGINAL DISCOMFORT [None]
  - DRUG INEFFECTIVE [None]
